FAERS Safety Report 7821481-7 (Version None)
Quarter: 2011Q4

REPORT INFORMATION
  Report Type: 
  Country: None (occurrence: None)
  Receive Date: 20111018
  Receipt Date: 20110708
  Transmission Date: 20120403
  Serious: No
  Sender: FDA-Public Use
  Company Number: US-ASTRAZENECA-2011SE40856

PATIENT
  Sex: Female

DRUGS (9)
  1. NIACIN [Concomitant]
     Indication: BLOOD CHOLESTEROL ABNORMAL
  2. NIACIN [Concomitant]
     Indication: SOCIAL AVOIDANT BEHAVIOUR
  3. SUPLLEMENT VITAMIN D [Concomitant]
     Indication: BLOOD CHOLESTEROL ABNORMAL
  4. DIAZEPAM [Concomitant]
     Indication: STRESS
  5. WATER PILL [Concomitant]
     Indication: FLUID REPLACEMENT
  6. ASPIRIN [Concomitant]
     Indication: PROPHYLAXIS
  7. SYMBICORT [Suspect]
     Dosage: 160/4.5 MG,DAILY AEROSOL
     Route: 055
  8. DIAZEPAM [Concomitant]
     Indication: BLOOD PRESSURE ABNORMAL
  9. SUPLLEMENT VITAMIN D [Concomitant]
     Indication: SOCIAL AVOIDANT BEHAVIOUR

REACTIONS (8)
  - OEDEMA PERIPHERAL [None]
  - FLUSHING [None]
  - DYSPNOEA AT REST [None]
  - JOINT SWELLING [None]
  - ABDOMINAL DISCOMFORT [None]
  - HEADACHE [None]
  - NASAL CONGESTION [None]
  - NAUSEA [None]
